FAERS Safety Report 9406154 (Version 2)
Quarter: 2013Q3

REPORT INFORMATION
  Report Type: Spontaneous
  Country: MX (occurrence: MX)
  Receive Date: 20130717
  Receipt Date: 20130730
  Transmission Date: 20140515
  Serious: Yes (Hospitalization, Other)
  Sender: FDA-Public Use
  Company Number: MX-BAXTER-2013BAX027483

PATIENT
  Age: 61 Year
  Sex: Female
  Weight: 65 kg

DRUGS (9)
  1. DIANEAL AL 2.5% [Suspect]
     Indication: PERITONEAL DIALYSIS
     Route: 033
     Dates: end: 20130701
  2. DIANEAL AL 2.5% [Suspect]
     Route: 033
     Dates: start: 20130711
  3. DIANEAL AL 4.25% [Suspect]
     Indication: PERITONEAL DIALYSIS
     Route: 033
     Dates: end: 20130701
  4. DIANEAL AL 4.25% [Suspect]
     Route: 033
     Dates: start: 20130711
  5. PRAZOSIN [Concomitant]
     Indication: HYPERTENSION
     Route: 048
  6. METOPROLOL [Concomitant]
     Indication: HYPERTENSION
     Route: 048
  7. NIFEDIPINE [Concomitant]
     Indication: HYPERTENSION
     Route: 048
  8. PRAVASTATIN [Concomitant]
     Indication: PRODUCT USED FOR UNKNOWN INDICATION
     Route: 048
  9. OMEPRAZOLE [Concomitant]
     Indication: PRODUCT USED FOR UNKNOWN INDICATION
     Route: 048

REACTIONS (2)
  - Blood pressure abnormal [Unknown]
  - Cerebral thrombosis [Recovered/Resolved with Sequelae]
